FAERS Safety Report 14273308 (Version 1)
Quarter: 2017Q4

REPORT INFORMATION
  Report Type: Spontaneous
  Country: US (occurrence: US)
  Receive Date: 20171211
  Receipt Date: 20171211
  Transmission Date: 20180321
  Serious: Yes (Other)
  Sender: FDA-Public Use
  Company Number: US-OTSUKA-2016_023171

PATIENT
  Age: 58 Year
  Sex: Male
  Weight: 108.8 kg

DRUGS (1)
  1. ABILIFY [Suspect]
     Active Substance: ARIPIPRAZOLE
     Indication: SCHIZOPHRENIA
     Dosage: UNK, QD
     Route: 048

REACTIONS (7)
  - Meniscus operation [Unknown]
  - Rotator cuff repair [Unknown]
  - Weight increased [Unknown]
  - Arthritis [Unknown]
  - Abdominal pain [Unknown]
  - Hyperphagia [Unknown]
  - Diarrhoea [Unknown]
